FAERS Safety Report 17780637 (Version 2)
Quarter: 2020Q2

REPORT INFORMATION
  Report Type: Report from Study
  Country: US (occurrence: US)
  Receive Date: 20200513
  Receipt Date: 20200527
  Transmission Date: 20200714
  Serious: No
  Sender: FDA-Public Use
  Company Number: US-JNJFOC-20200504364

PATIENT
  Age: 59 Year
  Sex: Male
  Weight: 78.09 kg

DRUGS (2)
  1. SPRAVATO [Suspect]
     Active Substance: ESKETAMINE
     Indication: DEPRESSION
     Dosage: HAS HAD APPROXIMATELY 13 INFUSIONS
     Dates: start: 20200127
  2. SPRAVATO [Suspect]
     Active Substance: ESKETAMINE
     Dates: start: 20200504, end: 20200504

REACTIONS (3)
  - Dissociation [Recovered/Resolved]
  - Dizziness [Recovered/Resolved]
  - Sedation [Recovered/Resolved]

NARRATIVE: CASE EVENT DATE: 20200504
